FAERS Safety Report 12501247 (Version 1)
Quarter: 2016Q2

REPORT INFORMATION
  Report Type: Spontaneous
  Country: US (occurrence: US)
  Receive Date: 20160627
  Receipt Date: 20160627
  Transmission Date: 20160815
  Serious: No
  Sender: FDA-Public Use
  Company Number: US-BAUSCH-BL-2015-023394

PATIENT
  Sex: Male

DRUGS (2)
  1. MULTIVITAMIN GUMMY [Concomitant]
     Indication: SUPPLEMENTATION THERAPY
  2. SOLODYN [Suspect]
     Active Substance: MINOCYCLINE HYDROCHLORIDE
     Indication: ACNE
     Route: 048

REACTIONS (1)
  - Fall [Recovered/Resolved]
